FAERS Safety Report 9290214 (Version 2)
Quarter: 2013Q3

REPORT INFORMATION
  Report Type: Spontaneous
  Country: US (occurrence: None)
  Receive Date: 20130510
  Receipt Date: 20130802
  Transmission Date: 20140515
  Serious: Yes (Other)
  Sender: FDA-Public Use
  Company Number: ACO_35822_2013

PATIENT
  Age: 57 Year
  Sex: Female
  Weight: 88.4 kg

DRUGS (6)
  1. AMPYRA [Suspect]
     Indication: PRODUCT USED FOR UNKNOWN INDICATION
     Route: 048
  2. SOMA (CARISOPRODOL) [Concomitant]
  3. LEXAPRO (ESCITALOPRAM OXALATE) [Concomitant]
  4. LIPITOR (ATORVASTATIN CALCIUM) [Concomitant]
  5. CALCIUM +D (CALCIUM CARBONEATE, COLECALCIFEROL) [Concomitant]
  6. VITAMIN D (ERGOCALCIFEROL) [Concomitant]

REACTIONS (5)
  - Fall [None]
  - Swelling [None]
  - Wrist fracture [None]
  - Complex regional pain syndrome [None]
  - Complex regional pain syndrome [None]
